FAERS Safety Report 5142185-8 (Version None)
Quarter: 2006Q4

REPORT INFORMATION
  Report Type: 
  Country: None (occurrence: None)
  Receive Date: 20061026
  Receipt Date: 20061016
  Transmission Date: 20070319
  Serious: Yes (Other)
  Sender: FDA-Public Use
  Company Number: HQWYE038215APR05

PATIENT
  Age: 63 Year
  Sex: Female
  Weight: 71.73 kg

DRUGS (2)
  1. PREMARIN [Suspect]
     Dates: start: 19900101
  2. PROVERA [Suspect]
     Dates: start: 19900101

REACTIONS (7)
  - BREAST CANCER METASTATIC [None]
  - BREAST CANCER STAGE III [None]
  - BREAST MICROCALCIFICATION [None]
  - FIBROCYSTIC BREAST DISEASE [None]
  - OESTROGEN RECEPTOR ASSAY POSITIVE [None]
  - POST PROCEDURAL HAEMATOMA [None]
  - PROGESTERONE RECEPTOR ASSAY POSITIVE [None]
